FAERS Safety Report 10517800 (Version 1)
Quarter: 2014Q4

REPORT INFORMATION
  Report Type: Report from Study
  Country: CO (occurrence: CO)
  Receive Date: 20141015
  Receipt Date: 20141015
  Transmission Date: 20150528
  Serious: Yes (Other)
  Sender: FDA-Public Use
  Company Number: CO-ROCHE-1474902

PATIENT
  Age: 76 Year
  Sex: Male

DRUGS (1)
  1. METHOXY POLYETHYLENE GLYCOL-EPOETIN BETA [Suspect]
     Active Substance: PEGZEREPOETIN ALFA
     Indication: NEPHROGENIC ANAEMIA
     Route: 058
     Dates: start: 20140319

REACTIONS (1)
  - Diabetes mellitus inadequate control [Recovering/Resolving]

NARRATIVE: CASE EVENT DATE: 201409
